FAERS Safety Report 16617251 (Version 3)
Quarter: 2021Q3

REPORT INFORMATION
  Report Type: Report from Study
  Country: AT (occurrence: AT)
  Receive Date: 20190723
  Receipt Date: 20210820
  Transmission Date: 20211014
  Serious: Yes (Hospitalization)
  Sender: FDA-Public Use
  Company Number: AT-MYLANLABS-2019M1067960

PATIENT
  Age: 82 Year
  Sex: Female

DRUGS (17)
  1. CALMOLAN [Concomitant]
     Dosage: UNK, ONGOING = CHECKED
     Route: 065
  2. VITAMINS WITH MINERALS [Concomitant]
     Active Substance: MINERALS\VITAMINS
     Dosage: UNK, ONGOING = CHECKED
     Route: 065
  3. NOMEXOR [Concomitant]
     Active Substance: NEBIVOLOL HYDROCHLORIDE
     Dosage: UNK
     Route: 065
  4. PARACETAMOL [Concomitant]
     Active Substance: ACETAMINOPHEN
     Dosage: UNK
     Route: 065
     Dates: start: 20181219, end: 20181219
  5. TRASTUZUMAB. [Suspect]
     Active Substance: TRASTUZUMAB
     Dosage: 288.2 MILLIGRAM (4 WEEK)
     Route: 042
     Dates: start: 20181128
  6. ONTRUZANT [Suspect]
     Active Substance: TRASTUZUMAB-DTTB
     Dosage: 288.2 MILLIGRAM, 4XW
     Route: 058
     Dates: start: 20181128
  7. DENOSUMAB [Suspect]
     Active Substance: DENOSUMAB
     Indication: BREAST CANCER METASTATIC
     Dosage: 120 MILLIGRAM, Q28D
     Route: 058
     Dates: start: 20181106
  8. TRASTUZUMAB. [Suspect]
     Active Substance: TRASTUZUMAB
     Indication: BREAST CANCER METASTATIC
     Dosage: UNK
     Route: 065
  9. ULSAL [Concomitant]
     Active Substance: RANITIDINE HYDROCHLORIDE
     Dosage: UNK, ONGOING = CHECKED
     Route: 065
  10. MACUSAN PLUS [Concomitant]
     Dosage: UNK, ONGOING = CHECKED
     Route: 065
  11. LETROZOLE. [Suspect]
     Active Substance: LETROZOLE
     Indication: HER2 POSITIVE BREAST CANCER
     Dosage: 2.5 MILLIGRAM, QD (O.D. ? ONCE DAILY)
     Route: 048
     Dates: start: 20181121
  12. ONTRUZANT [Suspect]
     Active Substance: TRASTUZUMAB-DTTB
     Indication: HER2 POSITIVE BREAST CANCER
     Dosage: 1 DOSAGE FORM, MONTHLY (4 WEEK)
     Route: 042
     Dates: start: 20181128
  13. CANDESARTAN CILEXETIL AND HYDROCHLOROTHIAZIDE [Concomitant]
     Active Substance: CANDESARTAN CILEXETIL\HYDROCHLOROTHIAZIDE
     Dosage: UNK
     Route: 065
  14. TRASTUZUMAB. [Suspect]
     Active Substance: TRASTUZUMAB
     Dosage: 288.2 MILLIGRAM (4 WEEK)
     Route: 042
     Dates: start: 20181219
  15. PANTOLOC                           /01263201/ [Concomitant]
     Active Substance: PANTOPRAZOLE SODIUM
     Dosage: UNK, ONGOING = CHECKED
     Route: 065
  16. SIMVASTATIN. [Concomitant]
     Active Substance: SIMVASTATIN
     Dosage: UNK, ONGOING = CHECKED
     Route: 065
  17. ITERIUM [Concomitant]
     Active Substance: RILMENIDINE
     Dosage: UNK, ONGOING = CHECKED
     Route: 065

REACTIONS (1)
  - Infusion related reaction [Recovered/Resolved]

NARRATIVE: CASE EVENT DATE: 20181128
